FAERS Safety Report 5406703-4 (Version None)
Quarter: 2007Q3

REPORT INFORMATION
  Report Type: 
  Country: None (occurrence: None)
  Receive Date: 20070807
  Receipt Date: 20070727
  Transmission Date: 20080115
  Serious: Yes (Death, Hospitalization)
  Sender: FDA-Public Use
  Company Number: HQWYE239527JUL07

PATIENT
  Age: 48 Year
  Sex: Male

DRUGS (5)
  1. PROPRANOLOL HYDROCHLORIDE [Suspect]
     Indication: PALPITATIONS
     Route: 048
     Dates: start: 20060320
  2. PHENTERMINE HYDROCHLORIDE [Concomitant]
     Dosage: NOT PROVIDED
     Route: 065
     Dates: start: 20030101, end: 20060301
  3. METFORMIN HCL [Concomitant]
  4. HYDROCORTISONE [Concomitant]
     Indication: THYROTOXIC CRISIS
     Dosage: NOT PROVIDED
     Route: 042
  5. GLYBURIDE [Concomitant]

REACTIONS (6)
  - CARDIO-RESPIRATORY ARREST [None]
  - CIRCULATORY COLLAPSE [None]
  - CONGESTIVE CARDIOMYOPATHY [None]
  - HEPATITIS [None]
  - HYPERTHYROIDISM [None]
  - MULTI-ORGAN FAILURE [None]
